FAERS Safety Report 23593154 (Version 2)
Quarter: 2024Q2

REPORT INFORMATION
  Report Type: Spontaneous
  Country: TW (occurrence: TW)
  Receive Date: 20240304
  Receipt Date: 20240408
  Transmission Date: 20240716
  Serious: Yes (Death, Life-Threatening, Other)
  Sender: FDA-Public Use
  Company Number: TW-PFIZER INC-PV202400028679

PATIENT
  Age: 55 Year
  Sex: Male
  Weight: 54.7 kg

DRUGS (17)
  1. TYGACIL [Suspect]
     Active Substance: TIGECYCLINE
     Indication: Soft tissue infection
     Dosage: 50 MG, 2X/DAY
     Route: 042
     Dates: start: 20240207, end: 20240213
  2. SULTAMICILLIN TOSYLATE [Concomitant]
     Active Substance: SULTAMICILLIN TOSYLATE
     Dosage: 3 G, 4X/DAY
     Route: 041
     Dates: start: 20240129, end: 20240201
  3. MOXIFLOXACIN [Concomitant]
     Active Substance: MOXIFLOXACIN
     Dosage: 400 MG, 1X/DAY
     Route: 041
     Dates: start: 20240201, end: 20240207
  4. AVELOX [Concomitant]
     Active Substance: MOXIFLOXACIN HYDROCHLORIDE
     Route: 041
  5. BOKEY ENTERIC [Concomitant]
     Route: 048
  6. LIPITOR [Concomitant]
     Active Substance: ATORVASTATIN CALCIUM
     Route: 048
  7. BISOPROLOL FUMARATE [Concomitant]
     Active Substance: BISOPROLOL FUMARATE
     Route: 048
  8. ESTAZOLAM [Concomitant]
     Active Substance: ESTAZOLAM
     Route: 048
  9. LACTULOSE [Concomitant]
     Active Substance: LACTULOSE
     Route: 048
  10. LINAGLIPTIN [Concomitant]
     Active Substance: LINAGLIPTIN
     Route: 048
  11. GLUCOPHAGE [Concomitant]
     Active Substance: METFORMIN HYDROCHLORIDE
     Route: 048
  12. IMPERAN [Concomitant]
  13. MORPHINE HYDROCHLORIDE [Concomitant]
     Active Substance: MORPHINE HYDROCHLORIDE
     Route: 058
  14. PANTOPRAZOLE SODIUM [Concomitant]
     Active Substance: PANTOPRAZOLE SODIUM
     Route: 041
  15. SILODOSIN [Concomitant]
     Active Substance: SILODOSIN
     Route: 048
  16. BRILINTA [Concomitant]
     Active Substance: TICAGRELOR
     Route: 048
  17. TRACETON [Concomitant]
     Route: 048

REACTIONS (7)
  - Hyperbilirubinaemia [Fatal]
  - Drug-induced liver injury [Fatal]
  - Acute hepatic failure [Fatal]
  - Jaundice [Fatal]
  - Acute kidney injury [Unknown]
  - Peripheral arterial occlusive disease [Unknown]
  - Gangrene [Unknown]

NARRATIVE: CASE EVENT DATE: 20240213
